FAERS Safety Report 5304936-9 (Version None)
Quarter: 2007Q2

REPORT INFORMATION
  Report Type: 
  Country: None (occurrence: None)
  Receive Date: 20070423
  Receipt Date: 20070416
  Transmission Date: 20071010
  Serious: Yes (Other)
  Sender: FDA-Public Use
  Company Number: US-SHR-US-2007-013220

PATIENT
  Age: 62 Year
  Sex: Male

DRUGS (7)
  1. MAGNEVIST [Suspect]
     Dosage: 20 ML, 1 DOSE
     Route: 042
     Dates: start: 20020902, end: 20020902
  2. MAGNEVIST [Suspect]
     Dosage: 20 ML, 1 DOSE
     Route: 042
     Dates: start: 20030805, end: 20030805
  3. MAGNEVIST [Suspect]
     Dosage: 20 ML, 1 DOSE
     Route: 042
     Dates: start: 20040809, end: 20040809
  4. MAGNEVIST [Suspect]
     Dosage: 40 ML, 1 DOSE
     Route: 042
     Dates: start: 20051108, end: 20051108
  5. MAGNEVIST [Suspect]
     Dosage: 20 ML, 1 DOSE
     Route: 042
     Dates: start: 20060402, end: 20060402
  6. MAGNEVIST [Suspect]
     Dosage: 60 ML, 1 DOSE
     Route: 042
     Dates: start: 20060721, end: 20060721
  7. MAGNEVIST [Suspect]
     Dates: start: 20070302, end: 20070302

REACTIONS (1)
  - NEPHROGENIC FIBROSING DERMOPATHY [None]
